FAERS Safety Report 8132950-7 (Version None)
Quarter: 2012Q1

REPORT INFORMATION
  Report Type: 
  Country: None (occurrence: None)
  Receive Date: 20120213
  Receipt Date: 20120104
  Transmission Date: 20120608
  Serious: Yes (Death, Other)
  Sender: FDA-Public Use
  Company Number: US-COVIDIEN/TYCO HEALTHCARE/MALLINCKRODT-T201200197

PATIENT
  Age: 15 Year
  Sex: Male

DRUGS (1)
  1. OXYCODONE HCL [Suspect]
     Route: 048

REACTIONS (6)
  - PULMONARY OEDEMA [None]
  - CARDIO-RESPIRATORY ARREST [None]
  - HEPATIC CONGESTION [None]
  - BRAIN OEDEMA [None]
  - DRUG ABUSE [None]
  - TOXICITY TO VARIOUS AGENTS [None]
